FAERS Safety Report 7321712 (Version 3)
Quarter: 2018Q4

REPORT INFORMATION
  Report Type: Spontaneous
  Country: JP (occurrence: JP)
  Receive Date: 20100316
  Receipt Date: 20181213
  Transmission Date: 20190205
  Serious: Yes (Other)
  Sender: FDA-Public Use
  Company Number: PHHY2010JP13848

PATIENT
  Sex: Female

DRUGS (1)
  1. DIOVAN [Suspect]
     Active Substance: VALSARTAN
     Indication: HYPERTENSION
     Dosage: 40 MG, QD
     Route: 048
     Dates: start: 20100119, end: 20100205

REACTIONS (3)
  - Malaise [Unknown]
  - Henoch-Schonlein purpura nephritis [Unknown]
  - Oedema [Unknown]

NARRATIVE: CASE EVENT DATE: 20100205
